FAERS Safety Report 24780361 (Version 1)
Quarter: 2024Q4

REPORT INFORMATION
  Report Type: Spontaneous
  Country: US (occurrence: US)
  Receive Date: 20241227
  Receipt Date: 20241227
  Transmission Date: 20250114
  Serious: No
  Sender: STALLERGENES
  Company Number: US-AIMMUNE THERAPEUTICS, INC.-2023AIMT01147

PATIENT
  Age: 11 Year
  Sex: Female

DRUGS (7)
  1. PALFORZIA [Suspect]
     Active Substance: PEANUT
     Indication: Food allergy
     Dosage: IDE (0.5-6MG), ONCE
     Dates: start: 20230717, end: 20230717
  2. PALFORZIA [Suspect]
     Active Substance: PEANUT
     Dosage: 3 MG, 1X/DAY
     Dates: start: 20230720
  3. PALFORZIA [Suspect]
     Active Substance: PEANUT
     Dosage: 3 MG, ONCE, LAST DOSE PRIOR STOMACH ACHE
     Dates: start: 20230720, end: 20230720
  4. PALFORZIA [Suspect]
     Active Substance: PEANUT
     Dosage: 20 MG, 1X/DAY
     Dates: start: 20230921
  5. PALFORZIA [Suspect]
     Active Substance: PEANUT
     Dosage: 20 MG, ONCE, LAST DOSE PRIOR STOMACH ACHE
     Dates: start: 20230921, end: 20230921
  6. PALFORZIA [Suspect]
     Active Substance: PEANUT
     Dosage: 40 MG, 1X/DAY
     Dates: start: 20231005
  7. PALFORZIA [Suspect]
     Active Substance: PEANUT
     Dosage: 40 MG, ONCE, LAST DOSE PRIOR TO ITCHY THROAT

REACTIONS (2)
  - Abdominal pain upper [Unknown]
  - Throat irritation [Not Recovered/Not Resolved]

NARRATIVE: CASE EVENT DATE: 20230720
